FAERS Safety Report 8974663 (Version 1)
Quarter: 2012Q4

REPORT INFORMATION
  Report Type: Spontaneous
  Country: US (occurrence: None)
  Receive Date: 20121217
  Receipt Date: 20121217
  Transmission Date: 20130627
  Serious: No
  Sender: FDA-Public Use
  Company Number: None

PATIENT
  Age: 56 Year
  Sex: Male

DRUGS (6)
  1. MANNITOL [Suspect]
     Indication: INTRACRANIAL PRESSURE INCREASED
     Dosage: 90 MG Q6HRS  IV Drip
     Route: 041
     Dates: start: 20120906, end: 20120909
  2. PANTOPRAZOLE [Concomitant]
  3. AMLODIPINE [Concomitant]
  4. NICARDIPINE [Concomitant]
  5. LORAZEPAM [Concomitant]
  6. LABETALOL [Concomitant]

REACTIONS (1)
  - Renal failure acute [None]
